FAERS Safety Report 5072663-1 (Version None)
Quarter: 2006Q3

REPORT INFORMATION
  Report Type: 
  Country: None (occurrence: None)
  Receive Date: 20060807
  Receipt Date: 20060630
  Transmission Date: 20061208
  Serious: Yes (Hospitalization, Disabling, Other)
  Sender: FDA-Public Use
  Company Number: DE-GLAXOSMITHKLINE-D0050183A

PATIENT
  Age: 73 Year
  Sex: Female
  Weight: 77 kg

DRUGS (6)
  1. QUILONUM RETARD [Suspect]
     Indication: BIPOLAR DISORDER
     Dosage: 450MG UNKNOWN
     Route: 048
     Dates: start: 19920101
  2. APONAL [Suspect]
     Indication: BIPOLAR DISORDER
     Dosage: 100MG PER DAY
     Route: 065
  3. ZOCOR [Suspect]
     Dosage: 10MG PER DAY
     Route: 048
  4. EUTHYROX [Suspect]
     Indication: HYPOTHYROIDISM
     Dosage: 75UG PER DAY
     Route: 048
  5. OSSOFORTIN FORTE [Suspect]
     Indication: OSTEOPOROSIS
     Dosage: 1TAB PER DAY
     Route: 048
  6. DIET PROGRAM [Suspect]
     Dates: start: 20050601, end: 20060701

REACTIONS (8)
  - DISTURBANCE IN ATTENTION [None]
  - DRUG INTERACTION [None]
  - FACE OEDEMA [None]
  - GLAUCOMA [None]
  - HYPOTHYROIDISM [None]
  - OEDEMA [None]
  - OVERDOSE [None]
  - SINOATRIAL BLOCK [None]
